FAERS Safety Report 6140800-3 (Version None)
Quarter: 2009Q1

REPORT INFORMATION
  Report Type: 
  Country: None (occurrence: None)
  Receive Date: 20090330
  Receipt Date: 20090330
  Transmission Date: 20090719
  Serious: Yes (Other)
  Sender: FDA-Public Use
  Company Number: None

PATIENT
  Sex: Male
  Weight: 15 kg

DRUGS (1)
  1. BUDESONIDE [Suspect]
     Indication: ASTHMA
     Dosage: 0.5 MGM BID NEBULIZER
     Dates: start: 20090209, end: 20090309

REACTIONS (4)
  - BODY TEMPERATURE INCREASED [None]
  - COUGH [None]
  - DRUG DISPENSING ERROR [None]
  - WHEEZING [None]
